FAERS Safety Report 14082012 (Version 2)
Quarter: 2017Q4

REPORT INFORMATION
  Report Type: Report from Study
  Country: US (occurrence: US)
  Receive Date: 20171013
  Receipt Date: 20171025
  Transmission Date: 20180321
  Serious: Yes (Hospitalization)
  Sender: FDA-Public Use
  Company Number: US-TESARO, INC.-US-2017TSO03197

PATIENT
  Age: 52 Year
  Sex: Female

DRUGS (10)
  1. PEMBROLIZUMAB. [Suspect]
     Active Substance: PEMBROLIZUMAB
     Indication: OVARIAN CANCER
     Dosage: 200 MG, Q21DAYS
     Route: 042
     Dates: start: 20171011
  2. LORAZEPAM. [Concomitant]
     Active Substance: LORAZEPAM
     Indication: ANXIETY
     Dosage: 0.5 MG, PRN
     Dates: start: 201709
  3. NIRAPARIB [Suspect]
     Active Substance: NIRAPARIB
     Indication: OVARIAN CANCER
     Dosage: 200 MG, QD
     Route: 048
     Dates: start: 20171011
  4. CLONAZEPAM. [Concomitant]
     Active Substance: CLONAZEPAM
     Indication: DEPRESSION
     Dosage: 0.5 MG, PRN
     Dates: start: 201501
  5. VENLAFAXINE [Concomitant]
     Active Substance: VENLAFAXINE HYDROCHLORIDE
     Indication: DEPRESSION
     Dosage: 150 MG, QD
     Dates: start: 201501
  6. NIRAPARIB [Suspect]
     Active Substance: NIRAPARIB
     Indication: TRIPLE NEGATIVE BREAST CANCER
     Dosage: 200 MG, QD
     Route: 048
     Dates: start: 20170920, end: 20171003
  7. PEMBROLIZUMAB. [Suspect]
     Active Substance: PEMBROLIZUMAB
     Indication: TRIPLE NEGATIVE BREAST CANCER
     Dosage: 200 MG, Q21DAYS
     Route: 042
     Dates: start: 20170920, end: 20170920
  8. ADVIL (MEFENAMIC ACID) [Concomitant]
     Active Substance: MEFENAMIC ACID
     Indication: FLANK PAIN
     Dosage: 200-400 MG, PRN
     Dates: start: 201709, end: 20171004
  9. CLONAZEPAM. [Concomitant]
     Active Substance: CLONAZEPAM
     Indication: ANXIETY
  10. LASIX [Concomitant]
     Active Substance: FUROSEMIDE
     Indication: GENERALISED OEDEMA
     Dosage: 20 MG, PRN
     Dates: start: 20170918, end: 20171004

REACTIONS (1)
  - Acute kidney injury [Recovered/Resolved with Sequelae]

NARRATIVE: CASE EVENT DATE: 20171005
